FAERS Safety Report 17323627 (Version 1)
Quarter: 2020Q1

REPORT INFORMATION
  Report Type: Spontaneous
  Country: DE (occurrence: DE)
  Receive Date: 20200127
  Receipt Date: 20200127
  Transmission Date: 20200409
  Serious: Yes (Congenital Anomaly, Other)
  Sender: FDA-Public Use
  Company Number: DE-TEVA-2020-DE-1173539

PATIENT
  Age: 1 Day
  Sex: Male
  Weight: 3.1 kg

DRUGS (1)
  1. VALPROAT [Suspect]
     Active Substance: VALPROATE SODIUM
     Indication: EPILEPSY
     Dosage: 300 [MG/D (2 X 150) ] 2 SEPARATED DOSES
     Route: 064

REACTIONS (10)
  - Motor developmental delay [Not Recovered/Not Resolved]
  - Impulse-control disorder [Not Recovered/Not Resolved]
  - Hypotonia [Not Recovered/Not Resolved]
  - Autism spectrum disorder [Not Recovered/Not Resolved]
  - Enuresis [Not Recovered/Not Resolved]
  - Strabismus [Not Recovered/Not Resolved]
  - Syndactyly [Not Recovered/Not Resolved]
  - Attention deficit/hyperactivity disorder [Not Recovered/Not Resolved]
  - Foetal exposure during pregnancy [Unknown]
  - Scoliosis [Not Recovered/Not Resolved]

NARRATIVE: CASE EVENT DATE: 20101010
